FAERS Safety Report 16171425 (Version 1)
Quarter: 2019Q2

REPORT INFORMATION
  Report Type: Spontaneous
  Country: FR (occurrence: FR)
  Receive Date: 20190408
  Receipt Date: 20190408
  Transmission Date: 20190711
  Serious: Yes (Hospitalization, Other)
  Sender: FDA-Public Use
  Company Number: FR-PFIZER INC-2019143451

PATIENT
  Age: 46 Year
  Sex: Female
  Weight: 72 kg

DRUGS (21)
  1. METHOTREXATE SODIUM. [Suspect]
     Active Substance: METHOTREXATE SODIUM
     Dosage: UNK
     Route: 042
     Dates: start: 20181022
  2. CYCLOPHOSPHAMIDE. [Suspect]
     Active Substance: CYCLOPHOSPHAMIDE
     Indication: ACUTE LYMPHOCYTIC LEUKAEMIA
     Dosage: 1305 MG, UNK
     Dates: start: 20180827
  3. CYTARABINE. [Suspect]
     Active Substance: CYTARABINE
     Indication: ACUTE LYMPHOCYTIC LEUKAEMIA
     Dosage: 40 MG, CYCLIC
     Route: 037
     Dates: start: 20180828, end: 20190121
  4. VINCRISTINE SULFATE. [Suspect]
     Active Substance: VINCRISTINE SULFATE
     Indication: ACUTE LYMPHOCYTIC LEUKAEMIA
     Dosage: 2 MG, UNK
     Route: 042
     Dates: start: 20180827
  5. PREDNISONE. [Suspect]
     Active Substance: PREDNISONE
     Indication: ACUTE LYMPHOCYTIC LEUKAEMIA
     Dosage: 100 MG, 1X/DAY
     Route: 048
     Dates: start: 20180827, end: 20180903
  6. PREDNISONE. [Suspect]
     Active Substance: PREDNISONE
     Dosage: 105 MG, 1X/DAY
     Route: 048
     Dates: start: 20190114, end: 20190120
  7. TRUXIMA [Suspect]
     Active Substance: RITUXIMAB-ABBS
     Indication: ACUTE LYMPHOCYTIC LEUKAEMIA
     Dosage: 600 MG, SINGLE
     Route: 042
     Dates: start: 20181105, end: 20181105
  8. ETOPOSIDE. [Suspect]
     Active Substance: ETOPOSIDE
     Indication: ACUTE LYMPHOCYTIC LEUKAEMIA
     Dosage: 250 MG, UNK
     Dates: start: 20181105
  9. VALACICLOVIR [Suspect]
     Active Substance: VALACYCLOVIR HYDROCHLORIDE
     Indication: PROPHYLAXIS
     Dosage: 1000 MG, 1X/DAY
     Route: 048
     Dates: start: 201809
  10. DEXAMETHASONE. [Suspect]
     Active Substance: DEXAMETHASONE
     Indication: ACUTE LYMPHOCYTIC LEUKAEMIA
     Dosage: 35 MG, CYCLIC
     Route: 048
     Dates: start: 20181005, end: 20181121
  11. NOMEGESTROL [Suspect]
     Active Substance: NOMEGESTROL
     Dosage: 5 MG, 1X/DAY
     Route: 048
     Dates: start: 20180926
  12. DAUNORUBICINE [Suspect]
     Active Substance: DAUNORUBICIN
     Indication: ACUTE LYMPHOCYTIC LEUKAEMIA
     Dosage: 52 MG, 1X/DAY
     Route: 042
     Dates: start: 20180827
  13. METHYLPREDNISOLONE ACETATE. [Suspect]
     Active Substance: METHYLPREDNISOLONE ACETATE
     Indication: ACUTE LYMPHOCYTIC LEUKAEMIA
     Dosage: 40 MG, CYCLIC
     Route: 037
     Dates: start: 20180828, end: 20190121
  14. CYTARABINE. [Suspect]
     Active Substance: CYTARABINE
     Dosage: 13200 MG, CYCLIC
     Route: 042
     Dates: start: 20181005, end: 20181121
  15. MERCAPTOPURINE. [Suspect]
     Active Substance: MERCAPTOPURINE
     Indication: ACUTE LYMPHOCYTIC LEUKAEMIA
     Dosage: 100 MG, UNK
     Route: 048
     Dates: start: 20181023
  16. GRANOCYTE [Suspect]
     Active Substance: LENOGRASTIM
     Indication: NEUTROPENIA
     Dosage: 265 MG, 1X/DAY
     Route: 042
     Dates: start: 201810
  17. KIDROLASE [Suspect]
     Active Substance: ASPARAGINASE
     Indication: ACUTE LYMPHOCYTIC LEUKAEMIA
     Dosage: 10300 IU, ALTERNATE DAY
     Route: 042
     Dates: start: 20180915, end: 20180919
  18. ERWINASE [CRISANTASPASE] [Suspect]
     Active Substance: ASPARAGINASE ERWINIA CHRYSANTHEMI
     Indication: ACUTE LYMPHOCYTIC LEUKAEMIA
     Dosage: 40000 IU, ALTERNATE DAY
     Route: 041
     Dates: start: 20190121, end: 20190125
  19. BACTRIM [Suspect]
     Active Substance: SULFAMETHOXAZOLE\TRIMETHOPRIM
     Indication: PROPHYLAXIS
     Dosage: 3 DF, WEEKLY
     Dates: start: 201809
  20. LEDERFOLINE [Suspect]
     Active Substance: LEUCOVORIN CALCIUM
     Indication: HYPOVITAMINOSIS
     Dosage: 25 MG, WEEKLY
     Route: 048
     Dates: start: 201809
  21. METHOTREXATE SODIUM. [Suspect]
     Active Substance: METHOTREXATE SODIUM
     Indication: ACUTE LYMPHOCYTIC LEUKAEMIA
     Dosage: 15 MG, UNK
     Route: 037
     Dates: start: 20180828, end: 20190121

REACTIONS (2)
  - Product use issue [Unknown]
  - Type 2 diabetes mellitus [Recovered/Resolved with Sequelae]

NARRATIVE: CASE EVENT DATE: 20190123
